FAERS Safety Report 9648684 (Version 2)
Quarter: 2013Q4

REPORT INFORMATION
  Report Type: Spontaneous
  Country: CL (occurrence: CL)
  Receive Date: 20131028
  Receipt Date: 20131101
  Transmission Date: 20140711
  Serious: Yes (Other)
  Sender: FDA-Public Use
  Company Number: CL-PFIZER INC-2013303310

PATIENT
  Age: 74 Year
  Sex: Female

DRUGS (5)
  1. XALATAN [Suspect]
     Indication: GLAUCOMA
     Dosage: UNK
     Dates: start: 2008
  2. LOSARTAN [Concomitant]
  3. ATENOLOL [Concomitant]
  4. ASPIRINA [Concomitant]
  5. HYDROCHLORZIDE [Concomitant]

REACTIONS (1)
  - Thyroid disorder [Recovered/Resolved]
